FAERS Safety Report 11591464 (Version 1)
Quarter: 2015Q4

REPORT INFORMATION
  Report Type: Spontaneous
  Country: JP (occurrence: JP)
  Receive Date: 20151005
  Receipt Date: 20151005
  Transmission Date: 20160304
  Serious: No
  Sender: FDA-Public Use
  Company Number: JP-NOVEN PHARMACEUTICALS, INC.-14JP010192

PATIENT
  Age: 50 Year
  Sex: Female

DRUGS (1)
  1. COMBIPATCH [Suspect]
     Active Substance: ESTRADIOL\NORETHINDRONE ACETATE
     Indication: MENOPAUSAL SYMPTOMS
     Dosage: 1 DF, 2/WK
     Route: 062
     Dates: start: 20140718, end: 20140819

REACTIONS (2)
  - Dermatitis contact [Unknown]
  - Nausea [Unknown]

NARRATIVE: CASE EVENT DATE: 20140819
